FAERS Safety Report 22052207 (Version 2)
Quarter: 2023Q1

REPORT INFORMATION
  Report Type: Report from Study
  Country: US (occurrence: US)
  Receive Date: 20230302
  Receipt Date: 20230313
  Transmission Date: 20230418
  Serious: No
  Sender: FDA-Public Use
  Company Number: US-ORGANON-O2302USA002700

PATIENT
  Age: 17 Year
  Sex: Female
  Weight: 59.864 kg

DRUGS (1)
  1. IMPLANON [Suspect]
     Active Substance: ETONOGESTREL
     Dosage: 1 IMPLANT OF 68 MILLIGRAM (MG) EVERY 3 YEARS, LEFT ARM; (DOSE/FREQUENCY REPORTED 68 MG), LEFT ARM
     Dates: start: 20230224, end: 20230224

REACTIONS (3)
  - Complication of device insertion [Not Recovered/Not Resolved]
  - Product quality issue [Unknown]
  - No adverse event [Unknown]

NARRATIVE: CASE EVENT DATE: 20230224
